FAERS Safety Report 9689050 (Version 2)
Quarter: 2013Q4

REPORT INFORMATION
  Report Type: Report from Study
  Country: US (occurrence: US)
  Receive Date: 20131114
  Receipt Date: 20131205
  Transmission Date: 20140711
  Serious: Yes (Hospitalization)
  Sender: FDA-Public Use
  Company Number: US-PURDUE-USA-2013-0108469

PATIENT
  Age: 59 Year
  Sex: Female

DRUGS (2)
  1. OXY CR TAB [Suspect]
     Indication: FIBROMYALGIA
     Dosage: 160 MG, Q12H
     Route: 048
     Dates: start: 20130827
  2. OXY CR TAB [Suspect]
     Indication: PAIN

REACTIONS (2)
  - Surgery [Unknown]
  - Pain [Unknown]
